FAERS Safety Report 26129005 (Version 1)
Quarter: 2025Q4

REPORT INFORMATION
  Report Type: Spontaneous
  Country: CA (occurrence: CA)
  Receive Date: 20251208
  Receipt Date: 20251208
  Transmission Date: 20260119
  Serious: Yes (Other)
  Sender: SANDOZ
  Company Number: CA-SANDOZ-SDZ2025CA091430

PATIENT
  Age: 70 Year
  Sex: Male

DRUGS (10)
  1. VORICONAZOLE [Suspect]
     Active Substance: VORICONAZOLE
     Indication: Keratitis bacterial
     Dosage: 200 MG, BID
     Route: 048
  2. VORICONAZOLE [Suspect]
     Active Substance: VORICONAZOLE
     Indication: Endophthalmitis
     Dosage: (1 MG/ML 1?2 H)
     Route: 061
  3. VORICONAZOLE [Suspect]
     Active Substance: VORICONAZOLE
     Indication: Keratitis fungal
     Dosage: UNK
  4. AMPHOTERICIN B [Concomitant]
     Active Substance: AMPHOTERICIN B
     Indication: Keratitis bacterial
     Route: 065
  5. AMPHOTERICIN B [Concomitant]
     Active Substance: AMPHOTERICIN B
     Indication: Keratitis fungal
  6. CEFTAZIDIME [Concomitant]
     Active Substance: CEFTAZIDIME
     Indication: Keratitis bacterial
     Route: 065
  7. CEFTAZIDIME [Concomitant]
     Active Substance: CEFTAZIDIME
     Indication: Keratitis fungal
  8. POSACONAZOLE [Concomitant]
     Active Substance: POSACONAZOLE
     Indication: Product used for unknown indication
     Route: 065
  9. VANCOMYCIN [Concomitant]
     Active Substance: VANCOMYCIN
     Indication: Keratitis bacterial
     Route: 065
  10. VANCOMYCIN [Concomitant]
     Active Substance: VANCOMYCIN
     Indication: Keratitis fungal

REACTIONS (5)
  - Disease progression [Unknown]
  - Eye excision [Unknown]
  - Panophthalmitis [Unknown]
  - Endophthalmitis [Unknown]
  - Drug ineffective [Unknown]
